FAERS Safety Report 7943279-1 (Version None)
Quarter: 2011Q4

REPORT INFORMATION
  Report Type: 
  Country: None (occurrence: None)
  Receive Date: 20111128
  Receipt Date: 20111121
  Transmission Date: 20120403
  Serious: Yes (Hospitalization)
  Sender: FDA-Public Use
  Company Number: FR-B.I. PHARMACEUTICALS,INC./RIDGEFIELD-2011-FF-01078FF

PATIENT
  Age: 79 Year
  Sex: Female
  Weight: 70 kg

DRUGS (2)
  1. ASPEGIC 325 [Suspect]
     Indication: ISCHAEMIC CARDIOMYOPATHY
     Route: 048
  2. PRADAXA [Suspect]
     Indication: ATRIAL FIBRILLATION
     Dosage: 220 MG
     Route: 048
     Dates: start: 20111001, end: 20111107

REACTIONS (2)
  - GASTROINTESTINAL ANGIODYSPLASIA [None]
  - RECTAL HAEMORRHAGE [None]
